FAERS Safety Report 5374707-6 (Version None)
Quarter: 2007Q2

REPORT INFORMATION
  Report Type: 
  Country: None (occurrence: None)
  Receive Date: 20070627
  Receipt Date: 20070627
  Transmission Date: 20071010
  Serious: No
  Sender: FDA-Public Use
  Company Number: None

PATIENT
  Age: 29 Year
  Sex: Female
  Weight: 61.4 kg

DRUGS (7)
  1. AMBISOME [Suspect]
     Indication: LEISHMANIASIS
     Dosage: 180 MG IN 180ML D5W IV
     Route: 042
     Dates: start: 20070108
  2. CALCIUM CHLORIDE [Concomitant]
  3. MOV [Concomitant]
  4. BACTROBAN [Concomitant]
  5. HYDROCODONE BITARTRATE [Concomitant]
  6. NYSTATIN [Concomitant]
  7. CORDRAN [Concomitant]

REACTIONS (7)
  - CHEST DISCOMFORT [None]
  - DYSPNOEA [None]
  - FLUSHING [None]
  - GASTRIC DISORDER [None]
  - INFUSION RELATED REACTION [None]
  - LIP SWELLING [None]
  - THROAT IRRITATION [None]
